FAERS Safety Report 9408813 (Version 3)
Quarter: 2013Q3

REPORT INFORMATION
  Report Type: Spontaneous
  Country: US (occurrence: US)
  Receive Date: 20130719
  Receipt Date: 20130923
  Transmission Date: 20140515
  Serious: Yes (Other)
  Sender: FDA-Public Use
  Company Number: US-AMGEN-USASP2013049733

PATIENT
  Age: 45 Year
  Sex: Male
  Weight: 76.19 kg

DRUGS (12)
  1. PROLIA [Suspect]
     Indication: OSTEOPOROSIS
     Dosage: 60 MG, Q6MO
     Route: 058
     Dates: start: 20130225
  2. DILANTIN                           /00017401/ [Concomitant]
     Indication: CONVULSION
     Dosage: 230 MG, QD
     Route: 048
  3. DEPAKOTE [Concomitant]
     Indication: CONVULSION
     Dosage: 1000 MG, TID
     Route: 048
  4. VALIUM                             /00017001/ [Concomitant]
     Indication: CONVULSION
     Dosage: 2 MG, BID
     Route: 048
  5. TOPAMAX [Concomitant]
     Indication: CONVULSION
     Dosage: 200 MG, BID
     Route: 048
  6. SEROQUEL [Concomitant]
  7. VIMPAT [Concomitant]
     Indication: CONVULSION
     Dosage: 200 MG, BID
     Route: 048
  8. CALCIUM WITH VITAMIN D             /00944201/ [Concomitant]
  9. MULTIVITAMIN                       /00097801/ [Concomitant]
  10. VITAMIN C                          /00008001/ [Concomitant]
  11. DOCUSATE SODIUM\SENNOSIDES [Concomitant]
  12. CARNITOR [Concomitant]

REACTIONS (2)
  - Convulsion [Recovered/Resolved]
  - Pyrexia [Recovered/Resolved]
